FAERS Safety Report 10078884 (Version 1)
Quarter: 2014Q2

REPORT INFORMATION
  Report Type: Spontaneous
  Country: DE (occurrence: None)
  Receive Date: 20140411
  Receipt Date: 20140411
  Transmission Date: 20141212
  Serious: Yes (Hospitalization)
  Sender: FDA-Public Use
  Company Number: DE-015182

PATIENT
  Age: 33 Year
  Sex: Female

DRUGS (3)
  1. BREVACTID [Suspect]
     Indication: PRODUCT USED FOR UNKNOWN INDICATION
     Dosage: THERAPY DATES (TO UNKNOWN)
  2. PUREGON /01348901/ [Suspect]
     Indication: PRODUCT USED FOR UNKNOWN INDICATION
  3. ZOLADEX [Concomitant]

REACTIONS (1)
  - Ovarian hyperstimulation syndrome [None]
